FAERS Safety Report 18041666 (Version 6)
Quarter: 2020Q4

REPORT INFORMATION
  Report Type: Report from Study
  Country: None (occurrence: US)
  Receive Date: 20200720
  Receipt Date: 20201112
  Transmission Date: 20210113
  Serious: Yes (Hospitalization)
  Sender: FDA-Public Use
  Company Number: US-ABBVIE-20K-163-3427742-00

PATIENT
  Age: 50 Year
  Sex: Female
  Weight: 90.8 kg

DRUGS (2)
  1. GABAPENTIN. [Concomitant]
     Active Substance: GABAPENTIN
     Indication: NEURALGIA
  2. HUMIRA [Suspect]
     Active Substance: ADALIMUMAB
     Indication: RHEUMATOID ARTHRITIS
     Route: 058
     Dates: start: 2019

REACTIONS (6)
  - Abdominal discomfort [Unknown]
  - Ligament rupture [Unknown]
  - Ankle fracture [Unknown]
  - Joint dislocation [Recovering/Resolving]
  - Fall [Recovered/Resolved]
  - Tibia fracture [Unknown]

NARRATIVE: CASE EVENT DATE: 20200521
